FAERS Safety Report 8722358 (Version 2)
Quarter: 2013Q4

REPORT INFORMATION
  Report Type: Spontaneous
  Country: FR (occurrence: FR)
  Receive Date: 20120814
  Receipt Date: 20131031
  Transmission Date: 20140711
  Serious: Yes (Hospitalization)
  Sender: FDA-Public Use
  Company Number: FR-MERCK-1208FRA004602

PATIENT
  Age: 84 Year
  Sex: Male

DRUGS (3)
  1. SINEMET 100 MG / 10 MG COMPRIME SECABLE [Suspect]
     Indication: PARKINSON^S DISEASE
     Dosage: 50 MG, QID
     Dates: end: 201202
  2. REQUIP LP [Suspect]
     Dosage: 4 MG, QD
     Route: 048
     Dates: end: 201202
  3. VERAPAMIL [Concomitant]
     Dosage: 240 MG, QD
     Route: 048

REACTIONS (2)
  - Aggression [Recovered/Resolved]
  - Hallucination [Recovered/Resolved]
